FAERS Safety Report 7646713-X (Version None)
Quarter: 2011Q3

REPORT INFORMATION
  Report Type: 
  Country: None (occurrence: None)
  Receive Date: 20110801
  Receipt Date: 20110725
  Transmission Date: 20111222
  Serious: Yes (Death, Hospitalization, Other)
  Sender: FDA-Public Use
  Company Number: US-BAYER-200943160NA

PATIENT
  Age: 74 Year
  Sex: Male
  Weight: 96 kg

DRUGS (16)
  1. DOXAZOSIN MESYLATE [Concomitant]
  2. NEORAL [Concomitant]
     Dosage: 75 MG, EVERY MORNING
     Route: 048
  3. LOTENSIN [Concomitant]
  4. LOTREL [Concomitant]
     Dosage: 5/20MG
  5. ZOCOR [Concomitant]
     Dosage: 10 MG, QD
     Route: 048
  6. CELLCEPT [Concomitant]
     Dosage: 500 MG, BID
  7. PREDNISONE TAB [Concomitant]
     Dosage: 5 MG, QD
  8. NORVASC [Concomitant]
  9. TRASYLOL [Suspect]
     Indication: AORTIC VALVE REPLACEMENT
     Route: 042
     Dates: start: 20051220
  10. ZANTAC [Concomitant]
     Dosage: 150 MG, EVERY EVEING
     Route: 048
  11. ALLOPURINOL [Concomitant]
     Dosage: 100 MG, QD
     Route: 048
  12. NEORAL [Concomitant]
     Dosage: 100 MG, EVERY EVENING
     Route: 048
  13. PROBENECID [Concomitant]
     Dosage: 500 MG, QD
  14. ACTONEL [Concomitant]
     Dosage: 5 MG, QD
     Route: 048
  15. ACETYLSALICYLIC ACID SRT [Concomitant]
     Dosage: 81 MG, QD
     Route: 048
  16. CARDURA [Concomitant]
     Dosage: 4 MG, QD
     Route: 048

REACTIONS (9)
  - RENAL FAILURE [None]
  - DEPRESSION [None]
  - INJURY [None]
  - GASTRIC DISORDER [None]
  - RENAL FAILURE ACUTE [None]
  - PAIN [None]
  - UNEVALUABLE EVENT [None]
  - DEATH [None]
  - RENAL INJURY [None]
